FAERS Safety Report 4757657-5 (Version None)
Quarter: 2005Q3

REPORT INFORMATION
  Report Type: 
  Country: None (occurrence: None)
  Receive Date: 20050831
  Receipt Date: 20050826
  Transmission Date: 20060218
  Serious: Yes (Hospitalization)
  Sender: FDA-Public Use
  Company Number: US-GLAXOSMITHKLINE-A0571966A

PATIENT

DRUGS (1)
  1. WELLBUTRIN [Suspect]
     Route: 048

REACTIONS (1)
  - OVERDOSE [None]
